FAERS Safety Report 6603058-4 (Version None)
Quarter: 2010Q1

REPORT INFORMATION
  Report Type: 
  Country: None (occurrence: None)
  Receive Date: 20100226
  Receipt Date: 20100215
  Transmission Date: 20100710
  Serious: Yes (Death, Hospitalization, Other)
  Sender: FDA-Public Use
  Company Number: PHHY2008JP03101

PATIENT
  Sex: Female
  Weight: 32 kg

DRUGS (11)
  1. TEGRETOL [Suspect]
     Indication: NEURALGIA
     Dosage: 200 MG, QD
     Route: 048
     Dates: start: 20070110, end: 20070320
  2. MEXILETINE HYDROCHLORIDE [Suspect]
     Indication: NEURALGIA
     Dosage: UNK, UNK
     Dates: start: 20070110, end: 20070324
  3. GEFITINIB [Concomitant]
     Dosage: UNK, UNK
     Dates: start: 20070101, end: 20070324
  4. PACLITAXEL [Concomitant]
  5. STEROIDS NOS [Concomitant]
  6. GANCICLOVIR [Concomitant]
     Indication: CYTOMEGALOVIRUS INFECTION
  7. PREDNISOLONE [Concomitant]
     Dosage: 40 MG/DAILY
  8. PROMAC                                  /JPN/ [Concomitant]
     Indication: GASTRITIS
     Dosage: 1 G, UNK
     Route: 048
     Dates: start: 20061204, end: 20070320
  9. LOXONIN [Concomitant]
     Indication: PAIN
     Dosage: 120 MG, UNK
     Route: 048
     Dates: start: 20061130, end: 20070601
  10. NOVAMIN [Concomitant]
     Indication: NAUSEA
     Dosage: 15 MG, UNK
     Route: 048
     Dates: start: 20061130, end: 20070320
  11. IRISSA [Concomitant]

REACTIONS (21)
  - ASCITES [None]
  - ASTHENIA [None]
  - DIARRHOEA [None]
  - DRUG RASH WITH EOSINOPHILIA AND SYSTEMIC SYMPTOMS [None]
  - DYSPNOEA [None]
  - ERYTHEMA [None]
  - FUNGAL INFECTION [None]
  - HYPOGLOBULINAEMIA [None]
  - INTERSTITIAL LUNG DISEASE [None]
  - LARGE INTESTINAL ULCER [None]
  - LIVER DISORDER [None]
  - LUNG NEOPLASM MALIGNANT [None]
  - LYMPHOCYTE MORPHOLOGY ABNORMAL [None]
  - LYMPHOCYTOSIS [None]
  - METASTASES TO LIVER [None]
  - OEDEMA PERIPHERAL [None]
  - PLEURAL EFFUSION [None]
  - PNEUMONIA CYTOMEGALOVIRAL [None]
  - PNEUMOTHORAX [None]
  - PYREXIA [None]
  - RASH [None]
